FAERS Safety Report 4901396-4 (Version None)
Quarter: 2006Q1

REPORT INFORMATION
  Report Type: 
  Country: None (occurrence: None)
  Receive Date: 20060206
  Receipt Date: 20060126
  Transmission Date: 20060701
  Serious: Yes (Hospitalization)
  Sender: FDA-Public Use
  Company Number: FR-ABBOTT-06P-056-0323486-00

PATIENT
  Sex: Female

DRUGS (1)
  1. VALPROATE CHRONO [Suspect]
     Indication: SUICIDE ATTEMPT
     Route: 048
     Dates: start: 20021103, end: 20021103

REACTIONS (3)
  - INTENTIONAL DRUG MISUSE [None]
  - INTENTIONAL OVERDOSE [None]
  - SUICIDE ATTEMPT [None]
